FAERS Safety Report 18489248 (Version 2)
Quarter: 2023Q1

REPORT INFORMATION
  Report Type: Spontaneous
  Country: DE (occurrence: DE)
  Receive Date: 20201111
  Receipt Date: 20230103
  Transmission Date: 20230418
  Serious: Yes (Hospitalization, Other)
  Sender: FDA-Public Use
  Company Number: DE-ROCHE-2422879

PATIENT
  Age: 70 Year
  Sex: Male
  Weight: 66 kg

DRUGS (22)
  1. DOXORUBICIN HYDROCHLORIDE [Suspect]
     Active Substance: DOXORUBICIN HYDROCHLORIDE
     Indication: Diffuse large B-cell lymphoma
     Dosage: 1ST LINE THERAPY ACCORDING TO R-CHOP REGIMEN, 6 CYCLES, AND 2 CYCLES OF RITUXIMAB AS MONOTHERAPY
     Route: 065
     Dates: start: 200910, end: 201002
  2. CYTARABINE [Suspect]
     Active Substance: CYTARABINE
     Indication: Diffuse large B-cell lymphoma
     Dosage: 3RD LINE THERAPY ACCORDING TO HD BEAM REGIMEN WITH AUTO SCT, 1 CYCLE
     Route: 065
     Dates: start: 201604
  3. CYCLOPHOSPHAMIDE [Suspect]
     Active Substance: CYCLOPHOSPHAMIDE
     Indication: Diffuse large B-cell lymphoma
     Dosage: 1ST LINE THERAPY ACCORDING TO R-CHOP REGIMEN, 6 CYCLES, AND 2 CYCLES OF RITUXIMAB AS MONOTHERAPY
     Route: 065
     Dates: start: 200910, end: 201002
  4. CYCLOPHOSPHAMIDE [Suspect]
     Active Substance: CYCLOPHOSPHAMIDE
     Indication: Lymphodepletion
     Dosage: REGIMEN 2
     Route: 042
     Dates: start: 20220901, end: 20220903
  5. DEXAMETHASONE [Suspect]
     Active Substance: DEXAMETHASONE
     Indication: Diffuse large B-cell lymphoma
     Dosage: 2ND LINE THERAPY ACCORDING TO R-GDP REGIMEN, 4 CYCLES
     Route: 065
     Dates: start: 201512, end: 201602
  6. METHOTREXATE [Suspect]
     Active Substance: METHOTREXATE
     Indication: Diffuse large B-cell lymphoma
     Dosage: 4TH CYCLE OF TREATMENT ACCORDING TO R-IMVP-16 REGIMEN, 5 CYCLES (IFOSFAMIDE 75%)
     Route: 065
     Dates: start: 201811, end: 201902
  7. ETOPOSIDE [Suspect]
     Active Substance: ETOPOSIDE
     Indication: Diffuse large B-cell lymphoma
     Route: 065
     Dates: start: 201811, end: 201902
  8. BRENTUXIMAB VEDOTIN [Suspect]
     Active Substance: BRENTUXIMAB VEDOTIN
     Indication: Diffuse large B-cell lymphoma
     Dosage: 5TH LINE TREATMENT, 4 CYCLES
     Route: 065
     Dates: start: 201905, end: 201909
  9. IFOSFAMIDE [Suspect]
     Active Substance: IFOSFAMIDE
     Indication: Diffuse large B-cell lymphoma
     Dosage: 4TH CYCLE OF TREATMENT ACCORDING TO R-IMVP-16 REGIMEN, 5 CYCLES (IFOSFAMIDE 75%)
     Route: 065
     Dates: start: 201811, end: 201902
  10. MELPHALAN [Suspect]
     Active Substance: MELPHALAN
     Indication: Diffuse large B-cell lymphoma
     Dosage: 3RD LINE THERAPY ACCORDING TO HD BEAM REGIMEN WITH AUTO SCT, 1 CYCLE
     Route: 065
     Dates: start: 201604
  11. PREDNISONE [Suspect]
     Active Substance: PREDNISONE
     Indication: Diffuse large B-cell lymphoma
     Dosage: 1ST LINE THERAPY ACCORDING TO R-CHOP REGIMEN, 6 CYCLES, AND 2 CYCLES OF RITUXIMAB ASMONOTHERAPY
     Route: 065
     Dates: start: 201002, end: 201002
  12. BICNU [Suspect]
     Active Substance: CARMUSTINE
     Indication: Diffuse large B-cell lymphoma
     Dosage: 3RD LINE THERAPY ACCORDING TO HD BEAM REGIMEN WITH AUTO SCT, 1 CYCLE
     Route: 065
     Dates: start: 201604
  13. VINCRISTINE [Suspect]
     Active Substance: VINCRISTINE
     Indication: Diffuse large B-cell lymphoma
     Dosage: 1ST LINE THERAPY ACCORDING TO R-CHOP REGIMEN, 6 CYCLES, AND 2 CYCLES OF RITUXIMAB ASMONOTHERAPY
     Route: 065
     Dates: start: 200910, end: 201002
  14. ETOPOSIDE [Suspect]
     Active Substance: ETOPOSIDE
     Indication: Diffuse large B-cell lymphoma
     Dosage: 3RD LINE THERAPY ACCORDING TO HD BEAM REGIMEN WITH AUTO SCT, 1 CYCLE
     Route: 065
     Dates: start: 201604
  15. MABTHERA [Suspect]
     Active Substance: RITUXIMAB
     Indication: Diffuse large B-cell lymphoma
     Dosage: 4TH CYCLE OF TREATMENT ACCORDING TO R-IMVP-16 REGIMEN, 5 CYCLES
     Route: 065
     Dates: start: 201811, end: 201902
  16. MABTHERA [Suspect]
     Active Substance: RITUXIMAB
     Dosage: 2ND LINE THERAPY ACCORDING TO R-GDP REGIMEN, 4 CYCLES
     Route: 065
     Dates: start: 201512, end: 201602
  17. MABTHERA [Suspect]
     Active Substance: RITUXIMAB
     Dosage: 1ST LINE THERAPY ACCORDING TO R-CHOP REGIMEN, 6 CYCLES, AND 2 CYCLES OF RITUXIMAB AS MONOTHERAPY
     Route: 065
     Dates: start: 200910, end: 201002
  18. GEMCITABINE [Suspect]
     Active Substance: GEMCITABINE
     Indication: Diffuse large B-cell lymphoma
     Route: 065
     Dates: start: 201512, end: 201602
  19. CISPLATIN [Suspect]
     Active Substance: CISPLATIN
     Indication: Diffuse large B-cell lymphoma
     Dosage: 2ND LINE THERAPY ACCORDING TO R-GDP REGIMEN, 4 CYCLES
     Route: 065
     Dates: start: 201512, end: 201602
  20. IDECABTAGENE VICLEUCEL [Suspect]
     Active Substance: IDECABTAGENE VICLEUCEL
     Indication: Plasma cell myeloma
     Dosage: 435 MILLION, REGIMEN 1
     Route: 042
     Dates: start: 20220906, end: 20220906
  21. FLUDARABINE [Suspect]
     Active Substance: FLUDARABINE PHOSPHATE
     Indication: Lymphodepletion
     Route: 042
     Dates: start: 20220901, end: 20220903
  22. FILGRASTIM [Concomitant]
     Active Substance: FILGRASTIM
     Indication: Product used for unknown indication
     Route: 065

REACTIONS (4)
  - Adenocarcinoma gastric [Unknown]
  - Pancytopenia [Unknown]
  - Off label use [Unknown]
  - Product use in unapproved indication [Unknown]

NARRATIVE: CASE EVENT DATE: 20091001
